FAERS Safety Report 12940715 (Version 3)
Quarter: 2016Q4

REPORT INFORMATION
  Report Type: Report from Study
  Country: LB (occurrence: LB)
  Receive Date: 20161115
  Receipt Date: 20161227
  Transmission Date: 20170207
  Serious: Yes (Other)
  Sender: FDA-Public Use
  Company Number: PHHY2013LB007582

PATIENT
  Age: 54 Year
  Sex: Male

DRUGS (1)
  1. TASIGNA [Suspect]
     Active Substance: NILOTINIB
     Indication: CHRONIC MYELOID LEUKAEMIA
     Dosage: 800 MG, QD
     Route: 048
     Dates: start: 20090213

REACTIONS (7)
  - Apraxia [Unknown]
  - Weight decreased [Not Recovered/Not Resolved]
  - Hyperglycaemia [Recovered/Resolved]
  - Facial paralysis [Recovering/Resolving]
  - Tumour marker increased [Not Recovered/Not Resolved]
  - Pyrexia [Recovering/Resolving]
  - Diarrhoea [Recovering/Resolving]

NARRATIVE: CASE EVENT DATE: 201212
